FAERS Safety Report 4440573-6 (Version None)
Quarter: 2004Q3

REPORT INFORMATION
  Report Type: 
  Country: None (occurrence: None)
  Receive Date: 20040831
  Receipt Date: 20040813
  Transmission Date: 20050211
  Serious: Yes (Other)
  Sender: FDA-Public Use
  Company Number: 601481

PATIENT
  Age: 15 Year
  Sex: Male

DRUGS (5)
  1. HEMOFIL [Suspect]
     Indication: FACTOR VIII DEFICIENCY
     Dates: start: 19760101, end: 19810101
  2. KOATE (FACTOR VIII (ANTIHAEMOPHILIC FACTOR)) [Suspect]
     Indication: FACTOR VIII DEFICIENCY
     Dates: start: 19790101, end: 19850101
  3. FACTORATE (FACTOR VIII (ANTIHAEMOPHILIC FACTOR)) [Suspect]
     Indication: FACTOR VIII DEFICIENCY
     Dates: start: 19790101, end: 19800101
  4. PROFILATE (UNCODED) [Suspect]
     Indication: FACTOR VIII DEFICIENCY
     Dates: start: 19800101, end: 19860101
  5. HUMANATE (UNCODED) [Suspect]
     Indication: FACTOR VIII DEFICIENCY
     Dates: start: 19800101, end: 19810101

REACTIONS (2)
  - HEPATITIS C [None]
  - HIV INFECTION [None]
